FAERS Safety Report 9013057 (Version 1)
Quarter: 2013Q1

REPORT INFORMATION
  Report Type: Spontaneous
  Country: US (occurrence: US)
  Receive Date: 20130114
  Receipt Date: 20130114
  Transmission Date: 20140127
  Serious: Yes (Other)
  Sender: FDA-Public Use
  Company Number: US-TEVA-379770USA

PATIENT
  Age: 80 Year
  Sex: Male

DRUGS (10)
  1. ISONIAZID [Suspect]
     Indication: TUBERCULIN TEST POSITIVE
     Dosage: 300MG/DAY
     Route: 065
  2. VALPROIC ACID [Interacting]
     Indication: SCHIZOPHRENIA, PARANOID TYPE
     Dosage: 3000MG/DAY
     Route: 065
  3. VALPROIC ACID [Interacting]
     Indication: COMPLEX PARTIAL SEIZURES
     Dosage: 3000MG/DAY
     Route: 065
  4. PYRIDOXINE [Concomitant]
     Indication: TUBERCULIN TEST POSITIVE
     Dosage: 50MG/DAY
     Route: 065
  5. QUETIAPINE [Concomitant]
     Dosage: 300MG/DAY FOR PAST 18MONTHS
     Route: 065
  6. OXYCODONE [Concomitant]
     Dosage: LOW DOSE
     Route: 065
  7. TAMSULOSIN [Concomitant]
     Route: 065
  8. FINASTERIDE [Concomitant]
     Route: 065
  9. OMEPRAZOLE [Concomitant]
     Route: 065
  10. CYANOCOBALAMIN [Concomitant]
     Route: 051

REACTIONS (7)
  - Drug interaction [Recovering/Resolving]
  - Drug level increased [Recovering/Resolving]
  - Toxicity to various agents [Recovering/Resolving]
  - Lethargy [Recovering/Resolving]
  - Dysarthria [Recovering/Resolving]
  - Weight decreased [Unknown]
  - Activities of daily living impaired [Recovered/Resolved]
